FAERS Safety Report 10625198 (Version 1)
Quarter: 2014Q4

REPORT INFORMATION
  Report Type: Spontaneous
  Country: FR (occurrence: FR)
  Receive Date: 20141204
  Receipt Date: 20141204
  Transmission Date: 20150529
  Serious: Yes (Hospitalization)
  Sender: FDA-Public Use
  Company Number: FR-ASTRAZENECA-2014SE92015

PATIENT
  Age: 25436 Day
  Sex: Male

DRUGS (5)
  1. RISORDAN [Suspect]
     Active Substance: ISOSORBIDE DINITRATE
     Indication: CATHETERISATION CARDIAC
     Route: 048
     Dates: start: 20141106, end: 20141106
  2. ATROPINE [Suspect]
     Active Substance: ATROPINE
     Indication: CATHETERISATION CARDIAC
     Route: 042
     Dates: start: 20141106, end: 20141106
  3. BRILIQUE [Suspect]
     Active Substance: TICAGRELOR
     Indication: CATHETERISATION CARDIAC
     Route: 048
     Dates: start: 20141106, end: 20141106
  4. LOVENOX [Suspect]
     Active Substance: ENOXAPARIN SODIUM
     Indication: CATHETERISATION CARDIAC
     Route: 058
     Dates: start: 20141106, end: 20141106
  5. HEXABRIX [Suspect]
     Active Substance: IOXAGLATE MEGLUMINE\IOXAGLATE SODIUM
     Indication: CATHETERISATION CARDIAC
     Route: 042
     Dates: start: 20141106, end: 20141106

REACTIONS (3)
  - Rash pustular [Recovered/Resolved]
  - Dermatitis exfoliative [Recovered/Resolved]
  - Eosinophilia [Recovered/Resolved]

NARRATIVE: CASE EVENT DATE: 20141107
